FAERS Safety Report 6166064-2 (Version None)
Quarter: 2009Q2

REPORT INFORMATION
  Report Type: 
  Country: None (occurrence: None)
  Receive Date: 20090422
  Receipt Date: 20090408
  Transmission Date: 20091009
  Serious: Yes (Hospitalization)
  Sender: FDA-Public Use
  Company Number: 8042398

PATIENT
  Age: 75 Year
  Sex: Male
  Weight: 79.38 kg

DRUGS (13)
  1. CIMZIA [Suspect]
     Indication: CROHN'S DISEASE
     Dosage: 400 MG /M SC
     Route: 058
     Dates: start: 20080501
  2. CYMBALTA [Concomitant]
  3. FOSAMAX [Concomitant]
  4. NEURONTIN [Concomitant]
  5. WELLBUTRIN [Concomitant]
  6. ZETIA [Concomitant]
  7. CIALIS [Concomitant]
  8. VITAMIN B COMPLEX CAP [Concomitant]
  9. CALCIUM D [Concomitant]
  10. FISH OIL [Concomitant]
  11. IRON [Concomitant]
  12. CENTRUM [Concomitant]
  13. NEXIUM [Concomitant]

REACTIONS (1)
  - CEREBROVASCULAR ACCIDENT [None]
